FAERS Safety Report 23437494 (Version 1)
Quarter: 2024Q1

REPORT INFORMATION
  Report Type: Spontaneous
  Country: US (occurrence: US)
  Receive Date: 20240124
  Receipt Date: 20240124
  Transmission Date: 20240409
  Serious: No
  Sender: FDA-Public Use
  Company Number: US-PFIZER INC-PV202300100124

PATIENT
  Age: 80 Year
  Sex: Female

DRUGS (4)
  1. IBRANCE [Suspect]
     Active Substance: PALBOCICLIB
     Dosage: 75 MG, CYCLIC (2 WEEKS ON AND 2 WEEKS OFF)
  2. FASLODEX [Concomitant]
     Active Substance: FULVESTRANT
     Dosage: UNK
  3. TESSALON [Concomitant]
     Active Substance: BENZONATATE
     Indication: Cough
     Dosage: UNK (TID PRN)
  4. VITAMIN B12 [Concomitant]
     Active Substance: CYANOCOBALAMIN
     Dosage: UNK

REACTIONS (3)
  - White blood cell count abnormal [Unknown]
  - Off label use [Unknown]
  - Product use issue [Unknown]
